FAERS Safety Report 21516182 (Version 1)
Quarter: 2022Q4

REPORT INFORMATION
  Report Type: Spontaneous
  Country: US (occurrence: US)
  Receive Date: 20221027
  Receipt Date: 20221027
  Transmission Date: 20230112
  Serious: No
  Sender: FDA-Public Use
  Company Number: US-FOUNDATIONCONSUMERHC-2022-US-020772

PATIENT
  Age: 17 Year
  Sex: Female
  Weight: 52.16 kg

DRUGS (1)
  1. PLAN B ONE-STEP [Suspect]
     Active Substance: LEVONORGESTREL
     Indication: Post coital contraception
     Dosage: 1.5 MG
     Route: 048
     Dates: start: 20220802, end: 20220802

REACTIONS (5)
  - Intentional product misuse [Recovered/Resolved]
  - Dysmenorrhoea [Unknown]
  - Menstruation irregular [Unknown]
  - Vaginal haemorrhage [Unknown]
  - Product use in unapproved indication [Recovered/Resolved]

NARRATIVE: CASE EVENT DATE: 20220801
